FAERS Safety Report 18087506 (Version 1)
Quarter: 2020Q3

REPORT INFORMATION
  Report Type: Spontaneous
  Country: GB (occurrence: GB)
  Receive Date: 20200729
  Receipt Date: 20200729
  Transmission Date: 20201103
  Serious: Yes (Other)
  Sender: FDA-Public Use
  Company Number: GB-PFIZER INC-2004209708GB

PATIENT
  Sex: Female
  Weight: 68.99 kg

DRUGS (2)
  1. CYTOTEC [Suspect]
     Active Substance: MISOPROSTOL
     Indication: ABORTION INDUCED
     Dosage: 800 UG, SINGLE
     Route: 067
     Dates: start: 20031009, end: 20031009
  2. MIFEPRISTONE [Suspect]
     Active Substance: MIFEPRISTONE
     Indication: ABORTION INDUCED
     Dosage: 200 MG, SINGLE
     Dates: start: 20031007, end: 20031007

REACTIONS (4)
  - Premature labour [Unknown]
  - Drug ineffective for unapproved indication [Unknown]
  - Amniotic cavity infection [Unknown]
  - Off label use [Unknown]
